FAERS Safety Report 18088891 (Version 1)
Quarter: 2020Q3

REPORT INFORMATION
  Report Type: Report from Study
  Country: FR (occurrence: FR)
  Receive Date: 20200729
  Receipt Date: 20200729
  Transmission Date: 20201103
  Serious: Yes (Hospitalization)
  Sender: FDA-Public Use
  Company Number: FR-ROCHE-2649732

PATIENT
  Age: 69 Year
  Sex: Female

DRUGS (4)
  1. ATEZOLIZUMAB. [Suspect]
     Active Substance: ATEZOLIZUMAB
     Indication: ANAL SQUAMOUS CELL CARCINOMA
     Dosage: LAST DOSE BEFORE SAE ON 12/FEB/2020
     Route: 065
     Dates: start: 20190320
  2. DOCETAXEL. [Suspect]
     Active Substance: DOCETAXEL
     Indication: ANAL SQUAMOUS CELL CARCINOMA
     Dosage: LAST DOSE BEFORE SAE ON 12/FEB/2020
     Route: 065
     Dates: start: 20190320
  3. 5 FLUROURACIL [Suspect]
     Active Substance: FLUOROURACIL
     Indication: ANAL SQUAMOUS CELL CARCINOMA
     Dosage: LAST DOSE BEFORE SAE ON 12/FEB/2020
     Route: 065
     Dates: start: 20190320
  4. CISPLATIN. [Suspect]
     Active Substance: CISPLATIN
     Indication: ANAL SQUAMOUS CELL CARCINOMA
     Dosage: LAST DOSE BEFORE SAE ON 12/FEB/2020
     Route: 065
     Dates: start: 20190320

REACTIONS (1)
  - Sarcoidosis [Recovered/Resolved]

NARRATIVE: CASE EVENT DATE: 20200317
